FAERS Safety Report 24816003 (Version 2)
Quarter: 2025Q1

REPORT INFORMATION
  Report Type: Spontaneous
  Country: US (occurrence: US)
  Receive Date: 20250107
  Receipt Date: 20250207
  Transmission Date: 20250409
  Serious: Yes (Hospitalization)
  Sender: IPSEN BIOPHARMACEUTICALS, INC.
  Company Number: US-IPSEN Group, Research and Development-2025-00415

PATIENT
  Age: 1 Year
  Sex: Female
  Weight: 7.57 kg

DRUGS (2)
  1. BYLVAY [Suspect]
     Active Substance: ODEVIXIBAT
     Indication: Biliary obstruction
     Dosage: SPRINKLE/MIX 400 UG TOTAL (2 PELLETS) WITH/OVER FOOD. ADVISED NOT TO SWALLOW WHOLE.
     Route: 048
  2. CHOLESTYRAMINE [Concomitant]
     Active Substance: CHOLESTYRAMINE

REACTIONS (1)
  - Respiratory tract infection viral [Unknown]

NARRATIVE: CASE EVENT DATE: 20241226
